FAERS Safety Report 10101160 (Version 2)
Quarter: 2014Q3

REPORT INFORMATION
  Report Type: Spontaneous
  Country: US (occurrence: US)
  Receive Date: 20140424
  Receipt Date: 20140827
  Transmission Date: 20150326
  Serious: No
  Sender: FDA-Public Use
  Company Number: US-009507513-1404USA008848

PATIENT
  Sex: Female

DRUGS (1)
  1. COPPERTONE CLEARLYSHEER FOR SUNNY DAYS SPF-30 [Suspect]
     Active Substance: AVOBENZONE\HOMOSALATE\OCTINOXATE\OCTISALATE\OXYBENZONE
     Indication: PRODUCT USED FOR UNKNOWN INDICATION
     Dosage: UNK, ONCE
     Route: 061

REACTIONS (1)
  - Pruritus [Not Recovered/Not Resolved]
